FAERS Safety Report 17331090 (Version 2)
Quarter: 2020Q1

REPORT INFORMATION
  Report Type: Spontaneous
  Country: PL (occurrence: PL)
  Receive Date: 20200128
  Receipt Date: 20200205
  Transmission Date: 20200409
  Serious: Yes (Hospitalization, Other)
  Sender: FDA-Public Use
  Company Number: PL-PFIZER INC-2020034031

PATIENT
  Age: 11 Year
  Sex: Female

DRUGS (10)
  1. ROXITHROMYCIN [Suspect]
     Active Substance: ROXITHROMYCIN
     Indication: LOWER URINARY TRACT SYMPTOMS
     Dosage: UNK
  2. IMIPENEM [Suspect]
     Active Substance: IMIPENEM
     Indication: LOWER URINARY TRACT SYMPTOMS
     Dosage: UNK
     Route: 065
  3. CEFTAZIDIME. [Suspect]
     Active Substance: CEFTAZIDIME
     Indication: PYREXIA
     Dosage: UNK
     Route: 065
  4. CEFOTAXIME [Suspect]
     Active Substance: CEFOTAXIME SODIUM
     Indication: PYREXIA
  5. AMIKACIN. [Suspect]
     Active Substance: AMIKACIN
     Indication: PYREXIA
  6. ROXITHROMYCIN [Suspect]
     Active Substance: ROXITHROMYCIN
     Indication: PYREXIA
  7. CEFTAZIDIME. [Suspect]
     Active Substance: CEFTAZIDIME
     Indication: LOWER URINARY TRACT SYMPTOMS
  8. CEFOTAXIME [Suspect]
     Active Substance: CEFOTAXIME SODIUM
     Indication: LOWER URINARY TRACT SYMPTOMS
     Dosage: UNK
     Route: 065
  9. AMIKACIN. [Suspect]
     Active Substance: AMIKACIN
     Indication: LOWER URINARY TRACT SYMPTOMS
     Dosage: UNK
     Route: 065
  10. IMIPENEM [Suspect]
     Active Substance: IMIPENEM
     Indication: PYREXIA

REACTIONS (1)
  - Pyelonephritis chronic [Recovering/Resolving]
